FAERS Safety Report 15424731 (Version 1)
Quarter: 2018Q3

REPORT INFORMATION
  Report Type: Spontaneous
  Country: FR (occurrence: FR)
  Receive Date: 20180925
  Receipt Date: 20180925
  Transmission Date: 20181010
  Serious: Yes (Hospitalization)
  Sender: FDA-Public Use
  Company Number: FR-TEVA-2018-FR-958191

PATIENT
  Age: 53 Year
  Sex: Male
  Weight: 60 kg

DRUGS (3)
  1. CISPLATIN. [Suspect]
     Active Substance: CISPLATIN
     Indication: TESTIS CANCER
     Dosage: 37 MILLIGRAM DAILY;
     Route: 042
     Dates: start: 20120502, end: 20120506
  2. BLEOMYCINE [Suspect]
     Active Substance: BLEOMYCIN SULFATE
     Indication: TESTIS CANCER
     Route: 042
     Dates: start: 20120502, end: 20120502
  3. ETOPOSIDE. [Suspect]
     Active Substance: ETOPOSIDE
     Indication: TESTIS CANCER
     Dosage: 186 MILLIGRAM DAILY;
     Route: 042
     Dates: start: 20120502, end: 20120506

REACTIONS (2)
  - Pancytopenia [Not Recovered/Not Resolved]
  - Pyrexia [Not Recovered/Not Resolved]

NARRATIVE: CASE EVENT DATE: 20120509
